FAERS Safety Report 7535905-6 (Version None)
Quarter: 2011Q2

REPORT INFORMATION
  Report Type: 
  Country: None (occurrence: None)
  Receive Date: 20110609
  Receipt Date: 20110603
  Transmission Date: 20111010
  Serious: Yes (Other)
  Sender: FDA-Public Use
  Company Number: US-BAYER-2011-048331

PATIENT
  Sex: Female

DRUGS (2)
  1. YAZ [Suspect]
     Dosage: UNK
     Dates: start: 20010601
  2. YASMIN [Suspect]
     Dosage: UNK
     Dates: start: 20010601

REACTIONS (4)
  - PAIN [None]
  - FEAR [None]
  - PULMONARY EMBOLISM [None]
  - INJURY [None]
